FAERS Safety Report 5294420-3 (Version None)
Quarter: 2007Q2

REPORT INFORMATION
  Report Type: 
  Country: None (occurrence: None)
  Receive Date: 20070412
  Receipt Date: 20070328
  Transmission Date: 20071010
  Serious: Yes (Other)
  Sender: FDA-Public Use
  Company Number: US-JNJFOC-20070106792

PATIENT
  Sex: Female
  Weight: 72.12 kg

DRUGS (8)
  1. REMICADE [Suspect]
     Route: 042
  2. REMICADE [Suspect]
     Route: 042
  3. REMICADE [Suspect]
     Route: 042
  4. REMICADE [Suspect]
     Indication: RHEUMATOID ARTHRITIS
     Route: 042
  5. MTX [Concomitant]
  6. VITAMINS [Concomitant]
  7. OSCAL [Concomitant]
  8. LISINOPRIL [Concomitant]

REACTIONS (2)
  - URETHRAL STENOSIS [None]
  - URINARY TRACT INFECTION [None]
